FAERS Safety Report 5774948-X (Version None)
Quarter: 2008Q2

REPORT INFORMATION
  Report Type: 
  Country: None (occurrence: None)
  Receive Date: 20080617
  Receipt Date: 20080410
  Transmission Date: 20081010
  Serious: No
  Sender: FDA-Public Use
  Company Number: US-BAYER-200819819NA

PATIENT
  Sex: Male

DRUGS (2)
  1. AVELOX [Suspect]
     Indication: DRUG USE FOR UNKNOWN INDICATION
     Route: 048
     Dates: start: 20061201
  2. AVELOX [Suspect]
     Route: 048
     Dates: start: 20080301

REACTIONS (3)
  - DRUG HYPERSENSITIVITY [None]
  - DYSPNOEA [None]
  - URTICARIA [None]
